FAERS Safety Report 7740364-4 (Version None)
Quarter: 2011Q3

REPORT INFORMATION
  Report Type: 
  Country: None (occurrence: None)
  Receive Date: 20110909
  Receipt Date: 20110829
  Transmission Date: 20111222
  Serious: Yes (Hospitalization)
  Sender: FDA-Public Use
  Company Number: US-BAYER-2011-000688

PATIENT
  Age: 26 Year
  Sex: Female
  Weight: 90.703 kg

DRUGS (21)
  1. YAZ [Suspect]
     Indication: CONTRACEPTION
     Dosage: UNK
     Dates: start: 20070901
  2. SOMA [Concomitant]
     Dosage: 350 MG, UNK
     Route: 048
  3. ZANTAC [Concomitant]
     Dosage: 150 MG, UNK
     Route: 048
  4. LAMISIL [Concomitant]
     Dosage: 250 MG, UNK
     Route: 048
  5. YAZ [Suspect]
     Indication: PREMENSTRUAL SYNDROME
  6. MAXALT-MLT [Concomitant]
     Dosage: 10 MG, UNK
  7. NORETHINDRONE [Concomitant]
     Dosage: UNK UNK, QD
     Route: 048
     Dates: start: 20080725
  8. LORTAB [Concomitant]
     Route: 048
  9. PREDISONE [Concomitant]
     Dosage: 20 MG, UNK
     Route: 048
  10. MEDROL [Concomitant]
     Dosage: 4 MG, UNK
     Route: 048
  11. BACTRIM DS [Concomitant]
     Dosage: 800 UNK, UNK
     Route: 048
  12. NAPROSYN [Concomitant]
     Dosage: 500 MG, UNK
     Route: 048
  13. IBUPROFEN [Concomitant]
     Dosage: 800 MG, UNK
     Route: 048
  14. CIPROFLOXACIN [Concomitant]
     Dosage: 500 MG, UNK
     Route: 048
  15. DAYPRO [Concomitant]
     Dosage: 600 MG, UNK
  16. ULTRAM [Concomitant]
     Dosage: 50 MG, UNK
     Route: 048
  17. AUGMENTIN '125' [Concomitant]
     Dosage: 500 MG, UNK
     Route: 048
  18. PHENERGAN VC W/ CODEINE [Concomitant]
  19. DIFLUCAN [Concomitant]
     Dosage: 150 MG, UNK
     Route: 048
  20. NYSTATIN [Concomitant]
  21. AMOXICILLIN [Concomitant]
     Dosage: 500 MG, UNK
     Route: 048

REACTIONS (4)
  - CHOLECYSTITIS CHRONIC [None]
  - INJURY [None]
  - CHOLELITHIASIS [None]
  - SCAR [None]
